FAERS Safety Report 11256418 (Version 3)
Quarter: 2015Q3

REPORT INFORMATION
  Report Type: Spontaneous
  Country: JP (occurrence: JP)
  Receive Date: 20150709
  Receipt Date: 20150731
  Transmission Date: 20151125
  Serious: Yes (Death, Other)
  Sender: FDA-Public Use
  Company Number: JP-ALLERGAN-1512989US

PATIENT
  Age: 57 Year
  Sex: Male

DRUGS (12)
  1. BOTOX [Suspect]
     Active Substance: ONABOTULINUMTOXINA
     Dosage: 60 UNITS, SINGLE
     Route: 030
     Dates: start: 20130603, end: 20130603
  2. MOHRUS [Concomitant]
     Active Substance: KETOPROFEN
  3. AMLODIPINE [Concomitant]
     Active Substance: AMLODIPINE BESYLATE
  4. BOTOX [Suspect]
     Active Substance: ONABOTULINUMTOXINA
     Dosage: 40 UNITS, SINGLE
     Route: 030
     Dates: start: 20130603, end: 20130603
  5. DIAZEPAM. [Concomitant]
     Active Substance: DIAZEPAM
  6. BOTOX [Suspect]
     Active Substance: ONABOTULINUMTOXINA
     Dosage: 20 UNITS, SINGLE
     Route: 030
     Dates: start: 20130603, end: 20130603
  7. MYONAL [Concomitant]
     Active Substance: EPERISONE HYDROCHLORIDE
     Dosage: UNK
  8. SENNARIDE SANKEN [Concomitant]
     Dosage: UNK
  9. BOTOX [Suspect]
     Active Substance: ONABOTULINUMTOXINA
     Dosage: 40 UNITS, SINGLE
     Route: 030
     Dates: start: 20130603, end: 20130603
  10. BOTOX [Suspect]
     Active Substance: ONABOTULINUMTOXINA
     Dosage: 20 UNITS, SINGLE
     Route: 030
     Dates: start: 20130603, end: 20130603
  11. BOTOX [Suspect]
     Active Substance: ONABOTULINUMTOXINA
     Indication: PARALYSIS
     Dosage: UNK, SINGLE
     Route: 030
     Dates: start: 20150129, end: 20150129
  12. BOTOX [Suspect]
     Active Substance: ONABOTULINUMTOXINA
     Dosage: 60 UNITS, SINGLE
     Route: 030
     Dates: start: 20130603, end: 20130603

REACTIONS (2)
  - Cardiac arrest [Fatal]
  - Altered state of consciousness [Fatal]

NARRATIVE: CASE EVENT DATE: 20150215
